FAERS Safety Report 5891043-X (Version None)
Quarter: 2008Q3

REPORT INFORMATION
  Report Type: 
  Country: None (occurrence: None)
  Receive Date: 20080918
  Receipt Date: 20080918
  Transmission Date: 20090109
  Serious: Yes (Life-Threatening, Hospitalization, Other)
  Sender: FDA-Public Use
  Company Number: None

PATIENT
  Age: 51 Year
  Sex: Female
  Weight: 70.3075 kg

DRUGS (4)
  1. MYOVIEW [Suspect]
     Indication: DIABETES MELLITUS
     Dosage: REST-10.7 MCI 8:00AM IV BOLUS STRESS-30.6 MCI 12:00PM IV BOLUS
     Route: 040
     Dates: start: 20070411, end: 20070411
  2. MYOVIEW [Suspect]
     Indication: HYPERTENSION
     Dosage: REST-10.7 MCI 8:00AM IV BOLUS STRESS-30.6 MCI 12:00PM IV BOLUS
     Route: 040
     Dates: start: 20070411, end: 20070411
  3. MYOVIEW [Suspect]
     Indication: RENAL FAILURE
     Dosage: REST-10.7 MCI 8:00AM IV BOLUS STRESS-30.6 MCI 12:00PM IV BOLUS
     Route: 040
     Dates: start: 20070411, end: 20070411
  4. . [Concomitant]

REACTIONS (2)
  - DIALYSIS [None]
  - RENAL FAILURE [None]
